FAERS Safety Report 9530188 (Version 2)
Quarter: 2013Q3

REPORT INFORMATION
  Report Type: Spontaneous
  Country: JP (occurrence: JP)
  Receive Date: 20130917
  Receipt Date: 20130927
  Transmission Date: 20140515
  Serious: Yes (Hospitalization)
  Sender: FDA-Public Use
  Company Number: JP-B.I. PHARMACEUTICALS,INC./RIDGEFIELD-2013-BI-28708NB

PATIENT
  Age: 71 Year
  Sex: Female

DRUGS (6)
  1. BI-SIFROL [Suspect]
     Indication: PARKINSON^S DISEASE
     Dosage: 0.5 MG
     Route: 048
  2. BI-SIFROL [Suspect]
     Dosage: 0.25 MG
     Route: 048
     Dates: start: 201211
  3. EXCEGRAN [Concomitant]
     Indication: PARKINSON^S DISEASE
     Dosage: 100 MG
     Route: 048
  4. BAYASPIRIN [Concomitant]
     Dosage: 20 MG
     Route: 048
  5. NEXIUM [Concomitant]
     Indication: PARKINSON^S DISEASE
     Dosage: 20 MG
     Route: 048
  6. CARVEDILOL [Concomitant]
     Dosage: 5 MG
     Route: 048

REACTIONS (2)
  - Arthropathy [Unknown]
  - Somnambulism [Unknown]
